FAERS Safety Report 7599462 (Version 2)
Quarter: 2013Q3

REPORT INFORMATION
  Report Type: Spontaneous
  Country: US (occurrence: US)
  Receive Date: 20100921
  Receipt Date: 20130909
  Transmission Date: 20140515
  Serious: Yes (Other)
  Sender: FDA-Public Use
  Company Number: US-RANBAXY-2010US-38063

PATIENT
  Age: 43 Year
  Sex: Female

DRUGS (7)
  1. TRIAMCINOLONE [Suspect]
     Indication: PRODUCT USED FOR UNKNOWN INDICATION
     Dosage: UNK
     Route: 065
     Dates: start: 20051206, end: 20051206
  2. TRIAMCINOLONE [Suspect]
     Dosage: UNK MG, UNK
     Route: 065
     Dates: start: 200512, end: 200512
  3. NEFAZODONE [Suspect]
     Indication: PRODUCT USED FOR UNKNOWN INDICATION
     Dosage: 600 MG, QD
     Route: 048
  4. COJUGATED ESTROGENS [Concomitant]
     Indication: PRODUCT USED FOR UNKNOWN INDICATION
     Dosage: 0.45 MG, QD
     Route: 048
  5. OXAZEPAM [Concomitant]
     Indication: PRODUCT USED FOR UNKNOWN INDICATION
     Dosage: 20-30 MG, DAILY
     Route: 048
  6. PREGABALIN [Concomitant]
     Indication: PRODUCT USED FOR UNKNOWN INDICATION
     Dosage: 300-600 MG, DAILY
     Route: 048
  7. HYDROCORTISONE [Concomitant]
     Indication: PRODUCT USED FOR UNKNOWN INDICATION
     Dosage: 15 MG, DAILY
     Route: 048

REACTIONS (3)
  - Secondary adrenocortical insufficiency [Recovering/Resolving]
  - Cushing^s syndrome [Recovering/Resolving]
  - Drug interaction [Unknown]
